FAERS Safety Report 5455755-4 (Version None)
Quarter: 2007Q3

REPORT INFORMATION
  Report Type: 
  Country: None (occurrence: None)
  Receive Date: 20070918
  Receipt Date: 20070702
  Transmission Date: 20080115
  Serious: Yes (Other)
  Sender: FDA-Public Use
  Company Number: US-ASTRAZENECA-2006UW22619

PATIENT
  Age: 417 Month
  Sex: Male
  Weight: 145.5 kg

DRUGS (7)
  1. SEROQUEL [Suspect]
     Indication: ANXIETY
     Route: 048
     Dates: start: 20010101, end: 20040101
  2. SEROQUEL [Suspect]
     Indication: SLEEP DISORDER
     Route: 048
     Dates: start: 20010101, end: 20040101
  3. HALDOL [Concomitant]
     Dates: start: 19970101
  4. RISPERDAL [Concomitant]
  5. SEROQUEL [Concomitant]
     Dates: start: 19970101
  6. ZOLOFT [Concomitant]
     Dates: start: 19970101
  7. PAXIL [Concomitant]
     Dates: start: 19970101

REACTIONS (2)
  - DIABETES MELLITUS [None]
  - DIABETIC KETOACIDOSIS [None]
